FAERS Safety Report 5095286-7 (Version None)
Quarter: 2006Q3

REPORT INFORMATION
  Report Type: 
  Country: None (occurrence: None)
  Receive Date: 20060901
  Receipt Date: 20060825
  Transmission Date: 20061208
  Serious: Yes (Hospitalization)
  Sender: FDA-Public Use
  Company Number: US-MERCK-0608USA06179

PATIENT
  Age: 13 Year
  Sex: Male

DRUGS (1)
  1. INVANZ [Suspect]
     Indication: OSTEOMYELITIS
     Route: 042
     Dates: start: 20060601, end: 20060707

REACTIONS (2)
  - DRUG INEFFECTIVE [None]
  - OSTEOMYELITIS [None]
